FAERS Safety Report 12183259 (Version 1)
Quarter: 2016Q1

REPORT INFORMATION
  Report Type: Spontaneous
  Country: BR (occurrence: BR)
  Receive Date: 20160316
  Receipt Date: 20160316
  Transmission Date: 20160526
  Serious: Yes (Death, Hospitalization)
  Sender: FDA-Public Use
  Company Number: BR-PFIZER INC-2016150404

PATIENT
  Age: 55 Year
  Sex: Male

DRUGS (1)
  1. SUTENT [Suspect]
     Active Substance: SUNITINIB MALATE
     Indication: METASTATIC RENAL CELL CARCINOMA
     Dosage: 50 MG, CONTINUOUS USE
     Route: 048

REACTIONS (3)
  - Headache [Unknown]
  - Cardiac arrest [Fatal]
  - Brain death [Fatal]

NARRATIVE: CASE EVENT DATE: 201601
